FAERS Safety Report 4753190-5 (Version None)
Quarter: 2005Q3

REPORT INFORMATION
  Report Type: 
  Country: None (occurrence: None)
  Receive Date: 20050824
  Receipt Date: 20050810
  Transmission Date: 20060218
  Serious: Yes (Hospitalization)
  Sender: FDA-Public Use
  Company Number: 170196

PATIENT
  Age: 23 Year
  Sex: Female
  Weight: 95.709 kg

DRUGS (4)
  1. AVONEX [Suspect]
     Indication: MULTIPLE SCLEROSIS
     Dosage: 30 UG; QW; IM
     Route: 030
     Dates: start: 20020101, end: 20020201
  2. AVONEX [Suspect]
     Indication: MULTIPLE SCLEROSIS
     Dosage: 30 UG; QW; IM
     Route: 030
     Dates: start: 20021101
  3. MUSCLE RELAXANT (NOS) [Concomitant]
  4. MEDICATION (NOS) [Concomitant]

REACTIONS (9)
  - ANXIETY [None]
  - COGNITIVE DISORDER [None]
  - CONDITION AGGRAVATED [None]
  - DEPRESSION [None]
  - ELECTROENCEPHALOGRAM ABNORMAL [None]
  - MIGRAINE [None]
  - MULTIPLE SCLEROSIS [None]
  - OPTIC ATROPHY [None]
  - VISUAL DISTURBANCE [None]
